FAERS Safety Report 12790335 (Version 1)
Quarter: 2016Q3

REPORT INFORMATION
  Report Type: Spontaneous
  Country: IT (occurrence: IT)
  Receive Date: 20160928
  Receipt Date: 20160928
  Transmission Date: 20161109
  Serious: Yes (Hospitalization)
  Sender: FDA-Public Use
  Company Number: IT-TAKEDA-2016TUS017222

PATIENT
  Age: 43 Year
  Sex: Male

DRUGS (3)
  1. DEPAKINE CHRONO 300MG COMPRESSE RIVESTITE/ VALPROIC ACID [Concomitant]
     Indication: BIPOLAR DISORDER
     Dosage: 300 MG, UNK
     Route: 048
  2. BRINTELLIX [Suspect]
     Active Substance: VORTIOXETINE HYDROBROMIDE
     Indication: DEPRESSION
     Dosage: UNK
     Route: 048
  3. LAMICTAL [Suspect]
     Active Substance: LAMOTRIGINE
     Indication: BIPOLAR DISORDER
     Dosage: 175 MG, QD
     Route: 048

REACTIONS (2)
  - Medication error [Unknown]
  - Vertigo [Unknown]

NARRATIVE: CASE EVENT DATE: 20160921
